APPROVED DRUG PRODUCT: CEFADROXIL
Active Ingredient: CEFADROXIL/CEFADROXIL HEMIHYDRATE
Strength: EQ 500MG BASE/5ML
Dosage Form/Route: FOR SUSPENSION;ORAL
Application: A062698 | Product #003
Applicant: ANI PHARMACEUTICALS INC
Approved: Mar 1, 1989 | RLD: No | RS: No | Type: DISCN